FAERS Safety Report 6662079-6 (Version None)
Quarter: 2010Q1

REPORT INFORMATION
  Report Type: 
  Country: None (occurrence: None)
  Receive Date: 20100331
  Receipt Date: 20100319
  Transmission Date: 20100710
  Serious: Yes (Other)
  Sender: FDA-Public Use
  Company Number: US-PFIZER INC-2010035902

PATIENT
  Sex: Female
  Weight: 81.633 kg

DRUGS (7)
  1. LYRICA [Suspect]
     Indication: FIBROMYALGIA
     Dosage: 50 MG, UNK
     Route: 048
     Dates: start: 20070101
  2. ACCURETIC [Concomitant]
     Indication: HYPERTENSION
     Dosage: UNK
     Route: 048
  3. DETROL LA [Concomitant]
     Indication: BLADDER DISORDER
     Dosage: UNK
     Route: 048
  4. SYNTHROID [Concomitant]
     Indication: THYROID DISORDER
     Dosage: UNK
     Route: 048
  5. MULTI-VITAMINS [Concomitant]
     Dosage: UNK
     Route: 048
  6. VITAMIN C [Concomitant]
     Dosage: UNK
  7. LOVAZA [Concomitant]
     Dosage: UNK

REACTIONS (3)
  - ASTHENIA [None]
  - IMPAIRED WORK ABILITY [None]
  - MUSCLE SPASMS [None]
